FAERS Safety Report 16753367 (Version 1)
Quarter: 2019Q3

REPORT INFORMATION
  Report Type: Spontaneous
  Country: GB (occurrence: GB)
  Receive Date: 20190829
  Receipt Date: 20190829
  Transmission Date: 20191005
  Serious: Yes (Other)
  Sender: FDA-Public Use
  Company Number: GB-TEVA-2019-GB-1098023

PATIENT
  Age: 62 Year
  Sex: Female
  Weight: 90 kg

DRUGS (2)
  1. URSODEOXYCHOLIC ACID [Concomitant]
     Active Substance: URSODIOL
  2. AMOXICILLIN TRIHYDRATE [Suspect]
     Active Substance: AMOXICILLIN
     Indication: SINUSITIS
     Dosage: 50 MILLIGRAM
     Route: 048
     Dates: start: 20190703, end: 20190703

REACTIONS (9)
  - Pain [Recovered/Resolved]
  - Swelling [Unknown]
  - Erythema [Recovered/Resolved]
  - Body temperature increased [Recovered/Resolved]
  - Feeling hot [Recovered/Resolved]
  - Product substitution issue [Unknown]
  - Blood pressure increased [Recovered/Resolved]
  - Vomiting [Unknown]
  - Rash pruritic [Recovered/Resolved]

NARRATIVE: CASE EVENT DATE: 20190703
